FAERS Safety Report 7093400-5 (Version None)
Quarter: 2010Q4

REPORT INFORMATION
  Report Type: 
  Country: None (occurrence: None)
  Receive Date: 20101110
  Receipt Date: 20101028
  Transmission Date: 20110411
  Serious: Yes (Other)
  Sender: FDA-Public Use
  Company Number: PHHY2010TW72724

PATIENT
  Sex: Female
  Weight: 59 kg

DRUGS (1)
  1. ZOLEDRONATE T29581++BM [Suspect]
     Dosage: 4 MG, PER MONTH
     Dates: start: 20090225, end: 20100303

REACTIONS (5)
  - IMPAIRED HEALING [None]
  - OPEN WOUND [None]
  - OSTEONECROSIS OF JAW [None]
  - TOOTH EXTRACTION [None]
  - TOOTHACHE [None]
